FAERS Safety Report 11735316 (Version 1)
Quarter: 2015Q4

REPORT INFORMATION
  Report Type: Spontaneous
  Country: US (occurrence: US)
  Receive Date: 20151113
  Receipt Date: 20151113
  Transmission Date: 20160304
  Serious: Yes (Hospitalization)
  Sender: FDA-Public Use
  Company Number: US-OTSUKA-2015_014216

PATIENT
  Age: 71 Year
  Sex: Male
  Weight: 96.8 kg

DRUGS (2)
  1. DACOGEN [Suspect]
     Active Substance: DECITABINE
     Indication: ACUTE MYELOID LEUKAEMIA
     Dosage: 20 MG/M2, CYCLE 1-2, 20MG/M2 IV OVER 60 MINS ON DAYS 1-10 OF 28 DAY CYCLE
     Route: 042
     Dates: start: 20120702
  2. DACOGEN [Suspect]
     Active Substance: DECITABINE
     Dosage: 20 MG/M2, UNK
     Route: 042
     Dates: start: 20120904, end: 20120913

REACTIONS (3)
  - Pneumatosis [Recovered/Resolved]
  - Urinary tract obstruction [Recovered/Resolved]
  - Calculus urinary [None]

NARRATIVE: CASE EVENT DATE: 20121002
